FAERS Safety Report 13621920 (Version 1)
Quarter: 2017Q2

REPORT INFORMATION
  Report Type: Spontaneous
  Country: US (occurrence: US)
  Receive Date: 20170607
  Receipt Date: 20170607
  Transmission Date: 20170830
  Serious: No
  Sender: FDA-Public Use
  Company Number: US-ROCHE-1802365

PATIENT
  Sex: Female

DRUGS (2)
  1. XELODA [Suspect]
     Active Substance: CAPECITABINE
     Indication: COLON CANCER STAGE III
     Route: 065
  2. VITAMIN B6 [Concomitant]
     Active Substance: PYRIDOXINE HYDROCHLORIDE
     Dosage: 2-3 TIMES A DAY
     Route: 065

REACTIONS (8)
  - Eyelid oedema [Unknown]
  - Dry eye [Not Recovered/Not Resolved]
  - Mental impairment [Unknown]
  - Fatigue [Not Recovered/Not Resolved]
  - Dysgeusia [Not Recovered/Not Resolved]
  - Eyelids pruritus [Unknown]
  - Lacrimation increased [Not Recovered/Not Resolved]
  - Gait disturbance [Unknown]
